FAERS Safety Report 9296801 (Version 1)
Quarter: 2013Q2

REPORT INFORMATION
  Report Type: Spontaneous
  Country: US (occurrence: US)
  Receive Date: 20130517
  Receipt Date: 20130517
  Transmission Date: 20140414
  Serious: Yes (Other)
  Sender: FDA-Public Use
  Company Number: US-PFIZER INC-2013148590

PATIENT
  Age: 73 Year
  Sex: Female
  Weight: 78 kg

DRUGS (2)
  1. AROMASIN [Suspect]
     Indication: BREAST CANCER
     Dosage: UNK, 1X/DAY
     Route: 048
     Dates: start: 2008
  2. WARFARIN [Concomitant]
     Dosage: UNK

REACTIONS (5)
  - Pulmonary embolism [Unknown]
  - Back disorder [Unknown]
  - Night sweats [Not Recovered/Not Resolved]
  - Hot flush [Unknown]
  - Pain [Unknown]
